FAERS Safety Report 22009992 (Version 3)
Quarter: 2024Q1

REPORT INFORMATION
  Report Type: Spontaneous
  Country: US (occurrence: US)
  Receive Date: 20230220
  Receipt Date: 20240118
  Transmission Date: 20240410
  Serious: Yes (Disabling, Other)
  Sender: FDA-Public Use
  Company Number: US-HORIZON THERAPEUTICS-HZN-2023-001265

PATIENT

DRUGS (10)
  1. TEPEZZA [Suspect]
     Active Substance: TEPROTUMUMAB-TRBW
     Indication: Endocrine ophthalmopathy
     Dosage: 750 MG (FIRST INFUSION)
     Route: 042
     Dates: start: 20211116
  2. TEPEZZA [Suspect]
     Active Substance: TEPROTUMUMAB-TRBW
     Indication: Graves^ disease
     Dosage: 1420 MG (SECOND INFUSION)
     Route: 042
     Dates: start: 20211207
  3. TEPEZZA [Suspect]
     Active Substance: TEPROTUMUMAB-TRBW
     Dosage: 1420 MG (THIRD INFUSION)
     Route: 042
     Dates: start: 20211228
  4. TEPEZZA [Suspect]
     Active Substance: TEPROTUMUMAB-TRBW
     Dosage: 1400 MG (FOURTH INFUSION)
     Route: 042
     Dates: start: 20220119
  5. TEPEZZA [Suspect]
     Active Substance: TEPROTUMUMAB-TRBW
     Dosage: 1380 MG (FIFTH INFUSION)
     Route: 042
     Dates: start: 20220209
  6. TEPEZZA [Suspect]
     Active Substance: TEPROTUMUMAB-TRBW
     Dosage: 1480 MG (SEVENTH INFUSION)
     Route: 042
     Dates: start: 20220323
  7. TEPEZZA [Suspect]
     Active Substance: TEPROTUMUMAB-TRBW
     Dosage: EIGHT INFUSION (20 MG/KG)
     Route: 042
     Dates: start: 20220413, end: 202204
  8. FLUTICASONE PROPIONATE [Concomitant]
     Active Substance: FLUTICASONE PROPIONATE
  9. SODIUM BICARBONATE\SODIUM CHLORIDE [Concomitant]
     Active Substance: SODIUM BICARBONATE\SODIUM CHLORIDE
     Dosage: UNK UNK, BID
  10. LEVO T [Concomitant]

REACTIONS (14)
  - Disability [Unknown]
  - Physical disability [Unknown]
  - Deafness permanent [Unknown]
  - Injury [Unknown]
  - Pain [Unknown]
  - Emotional distress [Unknown]
  - Anxiety [Unknown]
  - General physical health deterioration [Unknown]
  - Economic problem [Unknown]
  - Discomfort [Unknown]
  - Concomitant disease aggravated [Unknown]
  - Eustachian tube dysfunction [Unknown]
  - Tinnitus [Unknown]
  - Product quality issue [Unknown]
